FAERS Safety Report 19567387 (Version 3)
Quarter: 2021Q3

REPORT INFORMATION
  Report Type: Report from Study
  Country: CA (occurrence: CA)
  Receive Date: 20210714
  Receipt Date: 20210810
  Transmission Date: 20211014
  Serious: Yes (Other)
  Sender: FDA-Public Use
  Company Number: CA-OTSUKA-2021_010644

PATIENT
  Age: 79 Year
  Sex: Male

DRUGS (2)
  1. CEDAZURIDINE AND DECITABINE [Suspect]
     Active Substance: CEDAZURIDINE\DECITABINE
     Indication: MYELODYSPLASTIC SYNDROME
     Dosage: (35 MG DECITABINE AND 100 MG CEDAZURIDINE), QD
     Route: 065
     Dates: start: 20210223
  2. CEDAZURIDINE AND DECITABINE [Suspect]
     Active Substance: CEDAZURIDINE\DECITABINE
     Dosage: (35 MG DECITABINE AND 100 MG CEDAZURIDINE), QD (3 TABLETS A WEEK) IN 28 DAY CYCLE
     Route: 065

REACTIONS (5)
  - Epistaxis [Recovered/Resolved]
  - Product use issue [Unknown]
  - Therapy interrupted [Unknown]
  - Transfusion [Unknown]
  - Platelet count decreased [Not Recovered/Not Resolved]

NARRATIVE: CASE EVENT DATE: 2021
